FAERS Safety Report 19844878 (Version 1)
Quarter: 2021Q3

REPORT INFORMATION
  Report Type: Other
  Country: US (occurrence: US)
  Receive Date: 20210916
  Receipt Date: 20210916
  Transmission Date: 20211014
  Serious: Yes (Hospitalization)
  Sender: FDA-Public Use
  Company Number: US-ROCHE-2908616

PATIENT
  Sex: Female

DRUGS (2)
  1. VENCLEXTA [Suspect]
     Active Substance: VENETOCLAX
     Indication: PRODUCT USED FOR UNKNOWN INDICATION
     Dosage: TAKE 4 TABLET(S) BY MOUTH DAILY WITH FOOD AND GLASS OF WATER, DO NOT?CRUSH OR CHEW FOR 7 DAYS
     Route: 048
  2. GAZYVA [Suspect]
     Active Substance: OBINUTUZUMAB
     Indication: CHRONIC LYMPHOCYTIC LEUKAEMIA
     Dosage: 100MG ON DAY1 AND 900MG ON DAY 2, INFUSE 1000MG THEREAFTER INTRAVENOUSLY EVERY?28 DAY(S)
     Route: 042

REACTIONS (1)
  - Neurosis [Unknown]
